FAERS Safety Report 17052914 (Version 1)
Quarter: 2019Q4

REPORT INFORMATION
  Report Type: Report from Study
  Country: SA (occurrence: SA)
  Receive Date: 20191120
  Receipt Date: 20191120
  Transmission Date: 20200122
  Serious: Yes (Death)
  Sender: FDA-Public Use
  Company Number: SA-PFIZER INC-2019497975

PATIENT

DRUGS (4)
  1. FILGRASTIM [Suspect]
     Active Substance: FILGRASTIM
     Indication: ACUTE LEUKAEMIA
     Dosage: 400 UG/M2, DAILY (STARTED FROM DAY 1)
     Route: 058
  2. FLUDARABINE [Suspect]
     Active Substance: FLUDARABINE PHOSPHATE
     Indication: ACUTE LEUKAEMIA
     Dosage: 30 MG/M2, DAILY  (MAX 50 MG,BY 30-MIN INTRAVENOUS INFUSION; FIVE DOSES ON DAYS 2 TO 6)
     Route: 042
  3. CYTARABINE. [Suspect]
     Active Substance: CYTARABINE
     Indication: ACUTE LEUKAEMIA
     Dosage: 2 G/M^2, DAILY OVER 4 H, STARTING 4 H AFTER COMPLETING THE FLUDARABINE INFUSION
     Route: 042
  4. TRIMETHOPRIM SULFAMETHOXAZOLE [Concomitant]
     Active Substance: SULFAMETHOXAZOLE\TRIMETHOPRIM
     Indication: PROPHYLAXIS
     Dosage: UNK

REACTIONS (1)
  - Systemic candida [Fatal]
